FAERS Safety Report 22126709 (Version 1)
Quarter: 2023Q1

REPORT INFORMATION
  Report Type: Spontaneous
  Country: US (occurrence: None)
  Receive Date: 20230322
  Receipt Date: 20230322
  Transmission Date: 20230418
  Serious: No
  Sender: FDA-Public Use
  Company Number: None

PATIENT

DRUGS (2)
  1. ENTRESTO [Suspect]
     Active Substance: SACUBITRIL\VALSARTAN
  2. LOSARTAN [Suspect]
     Active Substance: LOSARTAN

REACTIONS (3)
  - Product prescribing error [None]
  - Product administration error [None]
  - Blood pressure decreased [None]
